FAERS Safety Report 4716960-5 (Version None)
Quarter: 2005Q3

REPORT INFORMATION
  Report Type: 
  Country: None (occurrence: None)
  Receive Date: 20050719
  Receipt Date: 20050711
  Transmission Date: 20060218
  Serious: Yes (Hospitalization)
  Sender: FDA-Public Use
  Company Number: GR-ABBOTT-05P-066-0305488-00

PATIENT
  Age: 67 Year
  Sex: Male

DRUGS (2)
  1. TARKA [Suspect]
     Indication: HYPERTENSION
     Dosage: 2/180 MILLIGRAM
     Route: 048
  2. APPROVEL [Concomitant]
     Indication: HYPERTENSION
     Route: 048

REACTIONS (2)
  - DYSPNOEA [None]
  - RASH MACULO-PAPULAR [None]
